FAERS Safety Report 11788805 (Version 1)
Quarter: 2015Q4

REPORT INFORMATION
  Report Type: Report from Study
  Country: KR (occurrence: KR)
  Receive Date: 20151201
  Receipt Date: 20151201
  Transmission Date: 20160305
  Serious: Yes (Death)
  Sender: FDA-Public Use
  Company Number: KR-AMGEN-KORCT2015126663

PATIENT
  Age: 63 Year
  Sex: Female

DRUGS (32)
  1. VINCRISTINE [Concomitant]
     Active Substance: VINCRISTINE
     Dosage: 2 MG, UNK
     Route: 042
     Dates: start: 20150807, end: 20150807
  2. PEGFILGRASTIM [Suspect]
     Active Substance: PEGFILGRASTIM
     Dosage: 6 MG, 1X/3WEEKS
     Route: 058
     Dates: start: 20150923, end: 20150923
  3. FLASINYL [Concomitant]
     Dosage: 1500 MG, UNK
     Route: 048
     Dates: start: 20150714, end: 20150727
  4. PEGFILGRASTIM [Suspect]
     Active Substance: PEGFILGRASTIM
     Dosage: 6 MG, 1X/3WEEKS
     Route: 058
     Dates: start: 20150830, end: 20150830
  5. VINCRISTINE [Concomitant]
     Active Substance: VINCRISTINE
     Dosage: 1.8 MG, UNK
     Route: 042
     Dates: start: 20150828, end: 20150828
  6. PHAZYME                            /00164001/ [Concomitant]
     Dosage: 3 TAB
     Route: 048
     Dates: end: 20150810
  7. CEFTRIAXONE. [Concomitant]
     Active Substance: CEFTRIAXONE
     Dosage: 2 G, UNK
     Route: 042
     Dates: start: 20150918
  8. EMEND [Concomitant]
     Active Substance: APREPITANT
     Dosage: 125 MG, UNK
     Route: 048
     Dates: start: 20150707
  9. MEGACE F [Concomitant]
     Dosage: 5 ML, UNK
     Route: 048
     Dates: start: 20150917
  10. CYCLOPHOSPHAMIDE. [Concomitant]
     Active Substance: CYCLOPHOSPHAMIDE
     Dosage: 980 MG, UNK
     Route: 042
     Dates: start: 20150828, end: 20150828
  11. CYCLOPHOSPHAMIDE. [Concomitant]
     Active Substance: CYCLOPHOSPHAMIDE
     Dosage: 920 MG, UNK
     Route: 042
     Dates: start: 20150922, end: 20150922
  12. DOXORUBICIN [Concomitant]
     Active Substance: DOXORUBICIN
     Dosage: 74 MG, UNK
     Route: 042
     Dates: start: 20150807, end: 20150807
  13. FLAGYL [Concomitant]
     Active Substance: METRONIDAZOLE\METRONIDAZOLE HYDROCHLORIDE
     Dosage: 500 MG, UNK
     Route: 042
     Dates: start: 20150707, end: 20150713
  14. MAXIPIME [Concomitant]
     Active Substance: CEFEPIME HYDROCHLORIDE
     Dosage: 2 G, UNK
     Route: 042
     Dates: start: 20150714, end: 20150727
  15. MORPHINE [Concomitant]
     Active Substance: MORPHINE
     Dosage: 5 MG, UNK
     Route: 042
     Dates: start: 20150917, end: 20150917
  16. DOXORUBICIN [Concomitant]
     Active Substance: DOXORUBICIN
     Dosage: 60 MG, UNK
     Route: 042
     Dates: start: 20150922, end: 20150922
  17. VINCRISTINE [Concomitant]
     Active Substance: VINCRISTINE
     Dosage: 1.7 MG, UNK
     Route: 042
     Dates: start: 20150922, end: 20150922
  18. PREDNISOLONE. [Concomitant]
     Active Substance: PREDNISOLONE
     Dosage: 80 MG, UNK
     Route: 042
     Dates: start: 20150807, end: 20150807
  19. CEFTRIAXONE. [Concomitant]
     Active Substance: CEFTRIAXONE
     Dosage: 2 G, UNK
     Route: 042
     Dates: start: 20150807
  20. PEGFILGRASTIM [Suspect]
     Active Substance: PEGFILGRASTIM
     Indication: FEBRILE NEUTROPENIA
     Dosage: 6 MG, 1X/3WEEKS
     Route: 058
     Dates: start: 20150811, end: 20150811
  21. DOXORUBICIN [Concomitant]
     Active Substance: DOXORUBICIN
     Dosage: 65 MG, UNK
     Route: 042
     Dates: start: 20150828, end: 20150828
  22. ETOPOSIDE. [Concomitant]
     Active Substance: ETOPOSIDE
     Dosage: 130 MG, UNK
     Route: 042
     Dates: start: 20150828, end: 20150828
  23. PREDNISOLONE. [Concomitant]
     Active Substance: PREDNISOLONE
     Dosage: 80 MG, UNK
     Route: 042
     Dates: start: 20150828, end: 20150828
  24. PANTOLOC                           /01263204/ [Concomitant]
     Active Substance: PANTOPRAZOLE SODIUM
     Dosage: 40 MG, UNK
     Route: 048
  25. GASMOTIN [Concomitant]
     Active Substance: MOSAPRIDE CITRATE
     Dosage: 5 MG, UNK
     Route: 048
     Dates: start: 20150902
  26. DUPHALAC EASY [Concomitant]
     Dosage: 30 ML, UNK
     Route: 048
     Dates: start: 20150731, end: 20150902
  27. OXYNORM [Concomitant]
     Active Substance: OXYCODONE HYDROCHLORIDE
     Dosage: 10 MG, UNK
     Route: 042
     Dates: start: 20150923
  28. CYCLOPHOSPHAMIDE. [Concomitant]
     Active Substance: CYCLOPHOSPHAMIDE
     Dosage: 1100 MG, UNK
     Route: 042
     Dates: start: 20150807, end: 20150807
  29. ETOPOSIDE. [Concomitant]
     Active Substance: ETOPOSIDE
     Dosage: 148 MG, UNK
     Route: 042
     Dates: start: 20150807, end: 20150807
  30. PREDNISOLONE. [Concomitant]
     Active Substance: PREDNISOLONE
     Dosage: 100 MG, UNK
     Route: 042
     Dates: start: 20150922, end: 20150922
  31. MAGO [Concomitant]
     Dosage: 3000 MG, UNK
     Route: 048
     Dates: start: 20150903
  32. DUROGESIC [Concomitant]
     Active Substance: FENTANYL
     Dosage: 12 MUG, UNK
     Route: 061
     Dates: start: 20150920

REACTIONS (1)
  - Septic shock [Fatal]

NARRATIVE: CASE EVENT DATE: 20150930
